FAERS Safety Report 4765624-0 (Version None)
Quarter: 2005Q3

REPORT INFORMATION
  Report Type: 
  Country: None (occurrence: None)
  Receive Date: 20050906
  Receipt Date: 20050822
  Transmission Date: 20060218
  Serious: Yes (Hospitalization)
  Sender: FDA-Public Use
  Company Number: DE_050716387

PATIENT
  Age: 15 Year
  Sex: Female
  Weight: 52 kg

DRUGS (1)
  1. STRATTERA [Suspect]
     Indication: ATTENTION DEFICIT/HYPERACTIVITY DISORDER
     Dosage: 18 MG DAY
     Dates: start: 20050501, end: 20050701

REACTIONS (12)
  - BLOOD CALCIUM DECREASED [None]
  - BLOOD POTASSIUM INCREASED [None]
  - BLOOD PRESSURE DIASTOLIC DECREASED [None]
  - BREAST PAIN [None]
  - INFECTION [None]
  - LYMPHADENOPATHY [None]
  - MALAISE [None]
  - MYOCARDITIS [None]
  - PHARYNGEAL ERYTHEMA [None]
  - RESPIRATORY TRACT INFECTION [None]
  - RHINITIS [None]
  - VENTRICULAR EXTRASYSTOLES [None]
